FAERS Safety Report 14066174 (Version 2)
Quarter: 2020Q3

REPORT INFORMATION
  Report Type: Report from Study
  Country: ES (occurrence: ES)
  Receive Date: 20171009
  Receipt Date: 20171020
  Transmission Date: 20201105
  Serious: No
  Sender: FDA-Public Use
  Company Number: ES-ASTRAZENECA-2017SF00343

PATIENT
  Age: 18924 Day
  Sex: Male
  Weight: 69 kg

DRUGS (7)
  1. MEDI4736 [Suspect]
     Active Substance: DURVALUMAB
     Indication: METASTATIC RENAL CELL CARCINOMA
     Route: 042
     Dates: start: 20170609, end: 20170823
  2. FUROSEMIDE. [Concomitant]
     Active Substance: FUROSEMIDE
     Indication: HYPERCALCAEMIA
     Route: 048
     Dates: start: 20170626
  3. FERPLEX [Concomitant]
     Indication: ANAEMIA
     Route: 048
  4. TREMELIMUMAB. [Suspect]
     Active Substance: TREMELIMUMAB
     Indication: METASTATIC RENAL CELL CARCINOMA
     Route: 042
     Dates: start: 20170609, end: 20170823
  5. SEGURIL [Concomitant]
     Active Substance: FUROSEMIDE
     Indication: HYPERCALCAEMIA
     Route: 048
     Dates: start: 20170524
  6. TARGIN [Concomitant]
     Active Substance: NALOXONE HYDROCHLORIDE\OXYCODONE HYDROCHLORIDE
     Indication: PAIN
     Route: 048
  7. KEPPRA [Concomitant]
     Active Substance: LEVETIRACETAM
     Route: 048

REACTIONS (1)
  - Hepatic function abnormal [Recovering/Resolving]

NARRATIVE: CASE EVENT DATE: 20170929
